FAERS Safety Report 5154487-X (Version None)
Quarter: 2006Q4

REPORT INFORMATION
  Report Type: 
  Country: None (occurrence: None)
  Receive Date: 20061114
  Receipt Date: 20061031
  Transmission Date: 20070319
  Serious: Yes (Disabling, Other)
  Sender: FDA-Public Use
  Company Number: SEWYE291520OCT06

PATIENT
  Age: 68 Year
  Sex: Female

DRUGS (5)
  1. EFFEXOR [Suspect]
     Indication: MAJOR DEPRESSION
     Dosage: 75 MG ORAL
     Route: 048
     Dates: start: 20030101
  2. CODEINE SUL TAB [Concomitant]
  3. ETODOLAC [Concomitant]
  4. FLUANXOL (FLUPENTIXOL DIHYDROCHLORIDE) [Concomitant]
  5. LAMOTRIGINE [Concomitant]

REACTIONS (1)
  - INTERVERTEBRAL DISC PROTRUSION [None]
